FAERS Safety Report 5775085-0 (Version None)
Quarter: 2008Q2

REPORT INFORMATION
  Report Type: 
  Country: None (occurrence: None)
  Receive Date: 20080616
  Receipt Date: 20080616
  Transmission Date: 20081010
  Serious: Yes (Other)
  Sender: FDA-Public Use
  Company Number: None

PATIENT
  Age: 51 Year
  Sex: Female
  Weight: 46.2669 kg

DRUGS (2)
  1. REGLAN [Suspect]
     Indication: GASTROINTESTINAL MOTILITY DISORDER
     Dosage: 4 TIMES DAILY WEEKS
     Dates: start: 20080306, end: 20080403
  2. REGLAN [Suspect]
     Indication: GASTROOESOPHAGEAL REFLUX DISEASE
     Dosage: 4 TIMES DAILY WEEKS
     Dates: start: 20080306, end: 20080403

REACTIONS (6)
  - DISTURBANCE IN ATTENTION [None]
  - FEELING ABNORMAL [None]
  - NEUROLOGICAL SYMPTOM [None]
  - ROAD TRAFFIC ACCIDENT [None]
  - SENSORY DISTURBANCE [None]
  - VISUAL DISTURBANCE [None]
